FAERS Safety Report 9629391 (Version 1)
Quarter: 2013Q4

REPORT INFORMATION
  Report Type: Spontaneous
  Country: US (occurrence: US)
  Receive Date: 20131017
  Receipt Date: 20131017
  Transmission Date: 20140711
  Serious: No
  Sender: FDA-Public Use
  Company Number: US-ASTRAZENECA-2013SE52472

PATIENT
  Age: 812 Month
  Sex: Female
  Weight: 60.3 kg

DRUGS (2)
  1. CRESTOR [Suspect]
     Indication: BLOOD CHOLESTEROL ABNORMAL
     Route: 048
     Dates: start: 2012
  2. GENERIC LIPITOR ATORVASTATIN CAL 20 MG RANBAXY PHARMACEUTICALS [Suspect]
     Indication: BLOOD CHOLESTEROL ABNORMAL
     Dates: start: 201210

REACTIONS (4)
  - Malaise [Unknown]
  - Vomiting [Unknown]
  - Abdominal discomfort [Unknown]
  - Drug dose omission [Unknown]
